FAERS Safety Report 15434818 (Version 1)
Quarter: 2018Q3

REPORT INFORMATION
  Report Type: Spontaneous
  Country: US (occurrence: US)
  Receive Date: 20180924
  Receipt Date: 20180924
  Transmission Date: 20181010
  Serious: No
  Sender: FDA-Public Use
  Company Number: None

PATIENT
  Age: 13 Year

DRUGS (2)
  1. ADYNOVATE [Concomitant]
     Active Substance: ANTIHEMOPHILIC FACTOR, HUMAN RECOMBINANT
  2. ADVATE [Suspect]
     Active Substance: ANTIHEMOPHILIC FACTOR, HUMAN RECOMBINANT
     Indication: HAEMOPHILIA
     Route: 040
     Dates: start: 20180920, end: 20180920

REACTIONS (4)
  - Haemorrhage [None]
  - Arthropathy [None]
  - Increased tendency to bruise [None]
  - Product substitution issue [None]

NARRATIVE: CASE EVENT DATE: 20180920
